FAERS Safety Report 9806114 (Version 1)
Quarter: 2014Q1

REPORT INFORMATION
  Report Type: Report from Study
  Country: US (occurrence: US)
  Receive Date: 20140109
  Receipt Date: 20140109
  Transmission Date: 20141002
  Serious: No
  Sender: FDA-Public Use
  Company Number: PHEH2014US000725

PATIENT
  Age: 29 Year
  Sex: Female
  Weight: 72.56 kg

DRUGS (6)
  1. TASIGNA [Suspect]
     Indication: CHRONIC MYELOID LEUKAEMIA
     Dosage: 300 MG, BID
     Route: 048
     Dates: start: 20131206
  2. AMBIEN [Concomitant]
     Dosage: UNK UKN, UNK
  3. HYDROCODONE/ACETAMINOPHEN          /00607101/ [Concomitant]
     Dosage: UNK UKN, UNK
  4. ZOFRAN [Concomitant]
  5. REGLAN                                  /USA/ [Concomitant]
     Dosage: UNK UKN, UNK
  6. HYDREA [Concomitant]
     Dosage: UNK UKN, UNK

REACTIONS (2)
  - Rash [Unknown]
  - Urticaria [Unknown]
